FAERS Safety Report 17133262 (Version 1)
Quarter: 2019Q4

REPORT INFORMATION
  Report Type: Spontaneous
  Country: US (occurrence: US)
  Receive Date: 20191210
  Receipt Date: 20191210
  Transmission Date: 20200122
  Serious: No
  Sender: FDA-Public Use
  Company Number: US-UCBSA-2016035550

PATIENT
  Age: 23 Year
  Sex: Female
  Weight: 27 kg

DRUGS (3)
  1. CLONAZEPAM. [Concomitant]
     Active Substance: CLONAZEPAM
     Indication: SEIZURE
     Dosage: 0.5MG TABLET ? VIA G-TUBE QAM AND ? QHS
     Dates: start: 2002
  2. LAMICTAL [Concomitant]
     Active Substance: LAMOTRIGINE
     Indication: SEIZURE
     Dosage: 25MG TABLETS ? VIA G-TUBE QAM AND ? QPM
     Dates: start: 2002
  3. KEPPRA [Suspect]
     Active Substance: LEVETIRACETAM
     Indication: SEIZURE
     Dosage: 250MG ? TABLET CRUSHED AND GIVEN VIA G TUBE, BID
     Dates: start: 201606

REACTIONS (2)
  - Wrong technique in product usage process [Unknown]
  - Urinary retention [Not Recovered/Not Resolved]

NARRATIVE: CASE EVENT DATE: 201606
